FAERS Safety Report 7322132-0 (Version None)
Quarter: 2011Q1

REPORT INFORMATION
  Report Type: 
  Country: None (occurrence: None)
  Receive Date: 20110228
  Receipt Date: 20110222
  Transmission Date: 20110831
  Serious: Yes (Other)
  Sender: FDA-Public Use
  Company Number: US-RB-018756-10

PATIENT
  Sex: Male

DRUGS (1)
  1. SUBOXONE [Suspect]
     Indication: DRUG DEPENDENCE
     Route: 060
     Dates: start: 20100101

REACTIONS (3)
  - HOMICIDAL IDEATION [None]
  - HALLUCINATION, AUDITORY [None]
  - ROAD TRAFFIC ACCIDENT [None]
